FAERS Safety Report 6726276-3 (Version None)
Quarter: 2010Q2

REPORT INFORMATION
  Report Type: 
  Country: None (occurrence: None)
  Receive Date: 20100514
  Receipt Date: 20100510
  Transmission Date: 20101027
  Serious: Yes (Other)
  Sender: FDA-Public Use
  Company Number: B0652642A

PATIENT
  Sex: Female

DRUGS (1)
  1. NIQUITIN CQ 21MG [Suspect]
     Route: 062

REACTIONS (5)
  - AGGRESSION [None]
  - INSOMNIA [None]
  - NERVOUSNESS [None]
  - NIGHTMARE [None]
  - TREATMENT NONCOMPLIANCE [None]
